FAERS Safety Report 11179617 (Version 2)
Quarter: 2016Q1

REPORT INFORMATION
  Report Type: Report from Study
  Country: JP (occurrence: JP)
  Receive Date: 20150611
  Receipt Date: 20160107
  Transmission Date: 20160525
  Serious: Yes (Hospitalization, Disabling, Other)
  Sender: FDA-Public Use
  Company Number: JP-ALEXION PHARMACEUTICALS INC.-A201502102

PATIENT
  Age: 33 Year
  Sex: Female
  Weight: 49 kg

DRUGS (5)
  1. MICARDIS [Concomitant]
     Active Substance: TELMISARTAN
     Indication: PAROXYSMAL NOCTURNAL HAEMOGLOBINURIA
     Dosage: 20 MG, QD
     Route: 048
     Dates: start: 20141125
  2. CRESTOR [Concomitant]
     Active Substance: ROSUVASTATIN CALCIUM
     Indication: HAEMOLYTIC URAEMIC SYNDROME
     Dosage: 2.5 MG, QD
     Route: 048
     Dates: start: 20141106
  3. BAYASPIRIN [Concomitant]
     Active Substance: ASPIRIN
     Indication: HAEMOLYTIC URAEMIC SYNDROME
     Dosage: 120 MG, QD
     Route: 048
     Dates: start: 20141120
  4. SOLIRIS [Suspect]
     Active Substance: ECULIZUMAB
     Indication: HAEMOLYTIC URAEMIC SYNDROME
     Dosage: 900 MG, QW
     Route: 042
     Dates: start: 20140918, end: 20141009
  5. SOLIRIS [Suspect]
     Active Substance: ECULIZUMAB
     Dosage: 1200 MG, Q2W
     Route: 042
     Dates: start: 20141016

REACTIONS (4)
  - Pneumonia [Recovered/Resolved]
  - Condition aggravated [Not Recovered/Not Resolved]
  - Thrombotic microangiopathy [Not Recovered/Not Resolved]
  - Renal impairment [Not Recovered/Not Resolved]

NARRATIVE: CASE EVENT DATE: 20150407
